FAERS Safety Report 4568350-6 (Version None)
Quarter: 2005Q1

REPORT INFORMATION
  Report Type: 
  Country: None (occurrence: None)
  Receive Date: 20050202
  Receipt Date: 20041216
  Transmission Date: 20050727
  Serious: Yes (Hospitalization)
  Sender: FDA-Public Use
  Company Number: AU-SANOFI-SYNTHELABO-F01200403928

PATIENT
  Sex: Female

DRUGS (7)
  1. CAPECITABINE [Suspect]
     Dosage: NA
  2. BEVACIZUMAB OR PLACEBO [Suspect]
     Route: 042
     Dates: start: 20041207, end: 20041207
  3. OXALIPLATIN [Suspect]
     Indication: COLORECTAL CANCER METASTATIC
     Route: 042
     Dates: start: 20041207, end: 20041207
  4. MAXOLON [Concomitant]
     Dosage: UNK
     Route: 065
     Dates: start: 20041207, end: 20041207
  5. DEXAMETHASONE [Concomitant]
     Dosage: UNK
     Route: 065
     Dates: start: 20041207, end: 20041207
  6. ZOFRAN [Concomitant]
     Dosage: UNK
     Route: 065
     Dates: start: 20041207, end: 20041207
  7. PRAVACHOL [Concomitant]
     Dosage: UNK
     Route: 065
     Dates: start: 19990915

REACTIONS (3)
  - DYSAESTHESIA [None]
  - LARYNGOSPASM [None]
  - PAIN IN EXTREMITY [None]
